FAERS Safety Report 11318164 (Version 2)
Quarter: 2017Q1

REPORT INFORMATION
  Report Type: Spontaneous
  Country: US (occurrence: US)
  Receive Date: 20150728
  Receipt Date: 20170222
  Transmission Date: 20170428
  Serious: Yes (Other)
  Sender: FDA-Public Use
  Company Number: US-PURDUE-USA-2015-0125067

PATIENT
  Age: 44 Year
  Sex: Female

DRUGS (1)
  1. HYDROCODONE BITARTRATE (SIMILAR TO NDA 206627) [Suspect]
     Active Substance: HYDROCODONE BITARTRATE
     Indication: PAIN
     Dosage: 120 MG, Q24H
     Route: 048

REACTIONS (6)
  - Skin lesion [Unknown]
  - Inadequate analgesia [Unknown]
  - Hypopituitarism [Unknown]
  - Cachexia [Unknown]
  - Weight decreased [Unknown]
  - Asthenia [Unknown]
